FAERS Safety Report 18655279 (Version 1)
Quarter: 2020Q4

REPORT INFORMATION
  Report Type: Spontaneous
  Country: US (occurrence: US)
  Receive Date: 20201223
  Receipt Date: 20201223
  Transmission Date: 20210114
  Serious: No
  Sender: FDA-Public Use
  Company Number: US-B.I. PHARMACEUTICALS,INC./RIDGEFIELD-2020-BI-071700

PATIENT
  Sex: Male

DRUGS (1)
  1. OFEV [Suspect]
     Active Substance: NINTEDANIB
     Indication: IDIOPATHIC PULMONARY FIBROSIS
     Dosage: UNKNOWN
     Route: 048

REACTIONS (7)
  - Dyspnoea [Unknown]
  - Cough [Unknown]
  - Weight decreased [Unknown]
  - Drug ineffective [Unknown]
  - Nausea [Unknown]
  - Regurgitation [Unknown]
  - Vomiting [Unknown]
